FAERS Safety Report 18684971 (Version 1)
Quarter: 2020Q4

REPORT INFORMATION
  Report Type: Spontaneous
  Country: US (occurrence: US)
  Receive Date: 20201230
  Receipt Date: 20201230
  Transmission Date: 20210114
  Serious: No
  Sender: FDA-Public Use
  Company Number: US-TEVA-2020-US-1863467

PATIENT
  Sex: Female

DRUGS (1)
  1. ALPRAZOLAM. [Suspect]
     Active Substance: ALPRAZOLAM
     Indication: INSOMNIA
     Route: 065

REACTIONS (5)
  - Product use in unapproved indication [Unknown]
  - Product quality issue [Unknown]
  - Hangover [Unknown]
  - Headache [Unknown]
  - Product substitution issue [Unknown]
